FAERS Safety Report 6249819-5 (Version None)
Quarter: 2009Q2

REPORT INFORMATION
  Report Type: 
  Country: None (occurrence: None)
  Receive Date: 20090629
  Receipt Date: 20090617
  Transmission Date: 20091009
  Serious: Yes (Hospitalization)
  Sender: FDA-Public Use
  Company Number: PHHY2009AT23987

PATIENT
  Age: 43 Year
  Sex: Female

DRUGS (1)
  1. LEPONEX [Suspect]
     Dosage: 15 TABLETS

REACTIONS (6)
  - AGITATION [None]
  - CONFUSIONAL STATE [None]
  - DIZZINESS [None]
  - DRUG ABUSE [None]
  - EXTRASYSTOLES [None]
  - SINUS TACHYCARDIA [None]
